FAERS Safety Report 9329328 (Version 4)
Quarter: 2013Q4

REPORT INFORMATION
  Report Type: Spontaneous
  Country: US (occurrence: US)
  Receive Date: 20130604
  Receipt Date: 20131004
  Transmission Date: 20140711
  Serious: Yes (Hospitalization)
  Sender: FDA-Public Use
  Company Number: US-VERTEX PHARMACEUTICALS INC-2013-006723

PATIENT
  Age: 55 Year
  Sex: Female

DRUGS (11)
  1. INCIVEK [Suspect]
     Indication: HEPATITIS C
     Dosage: 750 MG, TID
     Route: 048
     Dates: start: 20120210, end: 20120414
  2. PEGASYS [Suspect]
     Indication: HEPATITIS C
     Dosage: 180 ?G, QW
     Dates: start: 20120210, end: 20120414
  3. PEGASYS [Suspect]
     Dosage: UNK
     Dates: start: 20120423, end: 20130112
  4. RIBAPAK [Suspect]
     Indication: HEPATITIS C
     Dosage: 600 MG, 400 MG
     Dates: start: 20120210, end: 20120325
  5. RIBAPAK [Suspect]
     Dosage: 300 MG, BID
     Dates: start: 20120326, end: 20120414
  6. RIBAPAK [Suspect]
     Dosage: UNK
     Dates: start: 20120423, end: 20130112
  7. LEVOTHYROXINE [Concomitant]
  8. CLARITIN [Concomitant]
     Dosage: UNK, PRN
  9. LORAZEPAM [Concomitant]
     Dosage: 1 MG, QD
  10. PROMETHAZINE [Concomitant]
     Dosage: 25 MG, PRN
  11. CELEXA [Concomitant]
     Dosage: 10 MG, QD

REACTIONS (1)
  - Pancreatitis acute [Recovered/Resolved]
